FAERS Safety Report 7618297-3 (Version None)
Quarter: 2011Q3

REPORT INFORMATION
  Report Type: 
  Country: None (occurrence: None)
  Receive Date: 20110718
  Receipt Date: 20110711
  Transmission Date: 20111222
  Serious: Yes (Hospitalization, Other)
  Sender: FDA-Public Use
  Company Number: US-ROCHE-779229

PATIENT
  Age: 52 Year
  Sex: Female
  Weight: 61.2 kg

DRUGS (13)
  1. KLONOPIN [Suspect]
     Indication: INSOMNIA
     Dosage: FREQUENCY: QHS EVERY NIGHT MOST RECENT DOSE BEFORE EVENT: 16 APRIL 2011
     Route: 048
     Dates: start: 20060220
  2. PF-02341066 [Suspect]
     Indication: NON-SMALL CELL LUNG CANCER
     Route: 048
     Dates: start: 20110215, end: 20110406
  3. ZOFRAN [Concomitant]
     Indication: NAUSEA
     Dosage: FREQUENCY: AS NEEDED
     Route: 048
     Dates: start: 20110216
  4. TRAZODONE HCL [Suspect]
     Indication: INSOMNIA
     Dosage: FREQUENCY: QHS MOST RECENT DOSE BEFORE EVENT: 16 APRIL 2011
     Route: 048
     Dates: start: 20110329, end: 20110416
  5. SEROQUEL [Suspect]
     Indication: INSOMNIA
     Dosage: FREQUENCY: QHS MOST RECENT DOSE BEFORE EVENT: 16 APRIL 2011
     Route: 048
     Dates: start: 20060201
  6. PF-02341066 [Suspect]
     Route: 048
     Dates: start: 20110517
  7. SOMA [Suspect]
     Route: 065
  8. LYRICA [Concomitant]
     Indication: PAIN
     Dosage: MOST RECENT DOSE BEFORE EVENT: 16 APRIL 2011
     Route: 048
     Dates: start: 20101221, end: 20110416
  9. OXYCONTIN [Suspect]
     Indication: PAIN
     Dosage: MOST RECENT DOSE BEFORE EVENT: 16 APRIL 2011
     Route: 048
     Dates: start: 20090624
  10. OXYCODONE HCL [Concomitant]
     Indication: PAIN
     Dosage: FREQUENCY: AS NEEDED
     Route: 048
     Dates: start: 20090624
  11. COLACE [Concomitant]
     Indication: CONSTIPATION
     Dosage: FREQUENCY: PRN
     Route: 048
     Dates: start: 20101221
  12. PREVACID [Concomitant]
     Route: 048
     Dates: start: 20110302
  13. NIFEREX FORTE [Concomitant]
     Indication: SUPPLEMENTATION THERAPY
     Dosage: FREQUENCY: DAILY
     Route: 048
     Dates: start: 20100201

REACTIONS (11)
  - HYPOXIA [None]
  - OVERDOSE [None]
  - ILEUS [None]
  - PAIN [None]
  - SPINAL FRACTURE [None]
  - LOSS OF CONSCIOUSNESS [None]
  - MENTAL STATUS CHANGES [None]
  - ANAEMIA [None]
  - PNEUMONIA [None]
  - SPINAL OPERATION [None]
  - PULMONARY MASS [None]
